FAERS Safety Report 13305792 (Version 1)
Quarter: 2017Q1

REPORT INFORMATION
  Report Type: Spontaneous
  Country: US (occurrence: US)
  Receive Date: 20170308
  Receipt Date: 20170308
  Transmission Date: 20170428
  Serious: Yes (Life-Threatening, Hospitalization)
  Sender: FDA-Public Use
  Company Number: None

PATIENT
  Age: 53 Year
  Sex: Male
  Weight: 190.5 kg

DRUGS (1)
  1. ESTRADIOL. [Suspect]
     Active Substance: ESTRADIOL
     Indication: GENDER DYSPHORIA
     Route: 048
     Dates: start: 20140821, end: 20161119

REACTIONS (5)
  - Transient ischaemic attack [None]
  - Hemiparesis [None]
  - Cerebrovascular accident [None]
  - Facial paralysis [None]
  - Aphasia [None]

NARRATIVE: CASE EVENT DATE: 20161130
